FAERS Safety Report 4783369-8 (Version None)
Quarter: 2005Q3

REPORT INFORMATION
  Report Type: 
  Country: None (occurrence: None)
  Receive Date: 20050914
  Receipt Date: 20041217
  Transmission Date: 20060218
  Serious: Yes (Death, Hospitalization)
  Sender: FDA-Public Use
  Company Number: 163-20785-04040312

PATIENT
  Age: 73 Year
  Sex: Male

DRUGS (10)
  1. THALOMID [Suspect]
     Indication: METASTASES TO BONE
     Dosage: 100 MG, QHS, ORAL
     Route: 048
     Dates: start: 20040309, end: 20040101
  2. THALOMID [Suspect]
     Indication: PROSTATE CANCER
     Dosage: 100 MG, QHS, ORAL
     Route: 048
     Dates: start: 20040309, end: 20040101
  3. POTASSIUM (POTASSIUM) [Concomitant]
  4. PERCOCET [Concomitant]
  5. QUININE SULFATE [Concomitant]
  6. DILANTIN [Concomitant]
  7. COZAAR [Concomitant]
  8. NORVASC [Concomitant]
  9. ADVAIR DISKUS 100/50 [Concomitant]
  10. ASPIRIN [Concomitant]

REACTIONS (7)
  - DEATH [None]
  - DISEASE PROGRESSION [None]
  - DYSPNOEA [None]
  - FATIGUE [None]
  - OEDEMA PERIPHERAL [None]
  - RED BLOOD CELL COUNT DECREASED [None]
  - WHITE BLOOD CELL COUNT DECREASED [None]
